FAERS Safety Report 6602276-9 (Version None)
Quarter: 2010Q1

REPORT INFORMATION
  Report Type: 
  Country: None (occurrence: None)
  Receive Date: 20100225
  Receipt Date: 20100218
  Transmission Date: 20100710
  Serious: Yes (Death, Other)
  Sender: FDA-Public Use
  Company Number: US-BAXTER-2010BH001790

PATIENT
  Age: 60 Year
  Sex: Female

DRUGS (1)
  1. DIANEAL [Suspect]
     Indication: PERITONEAL DIALYSIS
     Route: 033

REACTIONS (6)
  - COLLAPSE OF LUNG [None]
  - DIABETIC COMPLICATION [None]
  - DYSPNOEA [None]
  - INFECTION [None]
  - SEPSIS [None]
  - WOUND [None]
